FAERS Safety Report 12581830 (Version 1)
Quarter: 2016Q3

REPORT INFORMATION
  Report Type: Spontaneous
  Country: US (occurrence: US)
  Receive Date: 20160722
  Receipt Date: 20160722
  Transmission Date: 20161109
  Serious: No
  Sender: FDA-Public Use
  Company Number: US-ASTRAZENECA-2016SE76702

PATIENT
  Sex: Male
  Weight: 122.5 kg

DRUGS (3)
  1. METFORMIN [Concomitant]
     Active Substance: METFORMIN HYDROCHLORIDE
     Indication: DIABETES MELLITUS
     Route: 048
     Dates: start: 2010
  2. BYDUREON [Suspect]
     Active Substance: EXENATIDE
     Indication: DIABETES MELLITUS
     Route: 058
     Dates: start: 201604
  3. JENUVIA [Concomitant]
     Indication: DIABETES MELLITUS
     Route: 048
     Dates: start: 201601

REACTIONS (4)
  - Pain [Unknown]
  - Injection site nodule [Unknown]
  - Injection site warmth [Unknown]
  - Injection site pruritus [Unknown]
